FAERS Safety Report 6196485-3 (Version None)
Quarter: 2009Q2

REPORT INFORMATION
  Report Type: 
  Country: None (occurrence: None)
  Receive Date: 20090520
  Receipt Date: 20090514
  Transmission Date: 20091009
  Serious: Yes (Death)
  Sender: FDA-Public Use
  Company Number: GB-TEVA-195086ISR

PATIENT
  Age: 13 Month

DRUGS (5)
  1. METHOTREXATE [Suspect]
  2. ANTITHYMOCYTE IMMUNOGLOBULIN (RABBIT) [Suspect]
  3. BUSULFAN [Suspect]
  4. CYCLOSPORINE [Suspect]
  5. CYCLOPHOSPHAMIDE [Suspect]

REACTIONS (2)
  - GRAFT VERSUS HOST DISEASE [None]
  - INFECTION [None]
